FAERS Safety Report 7272926-5 (Version None)
Quarter: 2011Q1

REPORT INFORMATION
  Report Type: 
  Country: None (occurrence: None)
  Receive Date: 20110126
  Receipt Date: 20110112
  Transmission Date: 20110831
  Serious: Yes (Hospitalization)
  Sender: FDA-Public Use
  Company Number: 2011-0107

PATIENT
  Age: 67 Year
  Sex: Male

DRUGS (1)
  1. APO-GO AMPOULES (APO-GO)(APOMORPHINE HYDROCHLORIDE) (APOMORPHINE HYDRO [Suspect]
     Indication: PRODUCT USED FOR UNKNOWN INDICATION
     Dosage: CONTINUOUS AT 2.5MG PER HOUR (CONTINUOUS AT 2.5MG PER HOUR),SUBCUTANEOUS
     Route: 058
     Dates: start: 20100805

REACTIONS (2)
  - FEMUR FRACTURE [None]
  - KNEE OPERATION [None]
